FAERS Safety Report 10708482 (Version 1)
Quarter: 2015Q1

REPORT INFORMATION
  Report Type: Spontaneous
  Country: DE (occurrence: DE)
  Receive Date: 20150113
  Receipt Date: 20150113
  Transmission Date: 20150721
  Serious: Yes (Hospitalization)
  Sender: FDA-Public Use
  Company Number: DE-ASTRAZENECA-2015SE01208

PATIENT
  Age: 58 Year
  Sex: Male

DRUGS (11)
  1. SEROQUEL [Suspect]
     Active Substance: QUETIAPINE FUMARATE
     Route: 048
     Dates: start: 20111111
  2. RISPERDAL [Suspect]
     Active Substance: RISPERIDONE
     Route: 065
  3. TAVOR [Concomitant]
     Active Substance: LORAZEPAM
     Dates: start: 20111014, end: 20111108
  4. SEROQUEL [Suspect]
     Active Substance: QUETIAPINE FUMARATE
     Dosage: 100 MG, BIS
     Route: 048
     Dates: start: 20111109
  5. SEROQUEL [Suspect]
     Active Substance: QUETIAPINE FUMARATE
     Route: 048
     Dates: start: 20111112, end: 20111115
  6. HALDOL [Concomitant]
     Active Substance: HALOPERIDOL
     Dates: start: 20111115
  7. SEROQUEL [Suspect]
     Active Substance: QUETIAPINE FUMARATE
     Route: 048
     Dates: start: 20111103
  8. CLEXANE [Concomitant]
     Active Substance: ENOXAPARIN SODIUM
     Dates: start: 20111109
  9. RAMIPRIL. [Concomitant]
     Active Substance: RAMIPRIL
     Dates: start: 20111015
  10. TAVOR [Concomitant]
     Active Substance: LORAZEPAM
     Dates: start: 20111111
  11. CONCOR [Concomitant]
     Active Substance: BISOPROLOL FUMARATE
     Dosage: 2.5, UNKNOWN
     Dates: start: 20111021

REACTIONS (2)
  - Myopathy [Recovering/Resolving]
  - Blood creatine phosphokinase increased [Recovering/Resolving]

NARRATIVE: CASE EVENT DATE: 2011
